FAERS Safety Report 24028825 (Version 1)
Quarter: 2024Q2

REPORT INFORMATION
  Report Type: Report from Study
  Country: US (occurrence: US)
  Receive Date: 20240628
  Receipt Date: 20240628
  Transmission Date: 20240716
  Serious: Yes (Other)
  Sender: FDA-Public Use
  Company Number: US-MYLANLABS-2024M1057807

PATIENT
  Age: 67 Year
  Sex: Male

DRUGS (5)
  1. BUDESONIDE [Suspect]
     Active Substance: BUDESONIDE
     Indication: Colitis microscopic
     Dosage: UNK
     Route: 065
  2. LOPERAMIDE [Suspect]
     Active Substance: LOPERAMIDE
     Indication: Colitis microscopic
     Dosage: UNK
     Route: 065
  3. USTEKINUMAB [Suspect]
     Active Substance: USTEKINUMAB
     Indication: Colitis microscopic
     Dosage: UNK
     Route: 065
  4. VEDOLIZUMAB [Suspect]
     Active Substance: VEDOLIZUMAB
     Indication: Colitis microscopic
     Dosage: UNK
     Route: 065
  5. RISANKIZUMAB [Suspect]
     Active Substance: RISANKIZUMAB
     Indication: Colitis microscopic
     Dosage: UNK
     Route: 065

REACTIONS (1)
  - Drug ineffective [Unknown]
